FAERS Safety Report 9116265 (Version 1)
Quarter: 2013Q1

REPORT INFORMATION
  Report Type: Spontaneous
  Country: US (occurrence: US)
  Receive Date: 20130225
  Receipt Date: 20130225
  Transmission Date: 20140127
  Serious: No
  Sender: FDA-Public Use
  Company Number: US-009507513-1302USA010991

PATIENT
  Sex: Female

DRUGS (4)
  1. JANUMET XR [Suspect]
     Indication: DIABETES MELLITUS
     Dosage: 100/1000 MG, ONCE A DAY
     Route: 048
     Dates: start: 20130213
  2. MICARDIS [Concomitant]
  3. LUMIGAN [Concomitant]
  4. CRESTOR [Concomitant]

REACTIONS (1)
  - Blood glucose increased [Not Recovered/Not Resolved]
